FAERS Safety Report 5638982-2 (Version None)
Quarter: 2008Q1

REPORT INFORMATION
  Report Type: 
  Country: None (occurrence: None)
  Receive Date: 20080226
  Receipt Date: 20080219
  Transmission Date: 20080703
  Serious: Yes (Life-Threatening, Hospitalization, Disabling)
  Sender: FDA-Public Use
  Company Number: PHHO2006DE09229

PATIENT
  Age: 80 Year
  Sex: Female
  Weight: 71 kg

DRUGS (2)
  1. FEMARA [Suspect]
     Indication: BREAST CANCER
     Dosage: 2.5 MG
     Route: 048
     Dates: start: 20040615, end: 20060417
  2. ZOLEDRONIC ACID [Suspect]
     Dosage: UNK, UNK
     Dates: start: 20040615

REACTIONS (5)
  - DYSPNOEA [None]
  - ENDOTRACHEAL INTUBATION [None]
  - INCREASED BRONCHIAL SECRETION [None]
  - MECHANICAL VENTILATION [None]
  - RESPIRATORY DISTRESS [None]
